FAERS Safety Report 13630895 (Version 5)
Quarter: 2017Q3

REPORT INFORMATION
  Report Type: Spontaneous
  Country: PL (occurrence: PL)
  Receive Date: 20170608
  Receipt Date: 20170718
  Transmission Date: 20171127
  Serious: Yes (Life-Threatening, Hospitalization)
  Sender: FDA-Public Use
  Company Number: PL-GE HEALTHCARE LIFE SCIENCES-2017CSU001522

PATIENT

DRUGS (1)
  1. OMNIPAQUE [Suspect]
     Active Substance: IOHEXOL
     Indication: CHOLELITHIASIS
     Dosage: 30 ML, SINGLE
     Route: 048
     Dates: start: 20170525, end: 20170525

REACTIONS (7)
  - Hyperhidrosis [Recovered/Resolved]
  - Anaphylactic shock [Recovered/Resolved]
  - Loss of consciousness [Recovered/Resolved]
  - Pallor [Recovered/Resolved]
  - Seizure [Recovered/Resolved]
  - Communication disorder [Unknown]
  - Wheezing [Recovered/Resolved]

NARRATIVE: CASE EVENT DATE: 20170525
